FAERS Safety Report 5047883-2 (Version None)
Quarter: 2006Q2

REPORT INFORMATION
  Report Type: 
  Country: None (occurrence: None)
  Receive Date: 20060601
  Receipt Date: 20060325
  Transmission Date: 20061013
  Serious: No
  Sender: FDA-Public Use
  Company Number: 2006PV010886

PATIENT
  Age: 69 Year
  Sex: Female
  Weight: 84.8226 kg

DRUGS (14)
  1. BYETTA [Suspect]
     Indication: DIABETES MELLITUS NON-INSULIN-DEPENDENT
     Dosage: SEE IMAGE
     Route: 058
     Dates: start: 20050601, end: 20050601
  2. BYETTA [Suspect]
     Indication: DIABETES MELLITUS NON-INSULIN-DEPENDENT
     Dosage: SEE IMAGE
     Route: 058
     Dates: start: 20050601
  3. CRESTOR [Suspect]
     Indication: DRUG USE FOR UNKNOWN INDICATION
     Dates: start: 20050101, end: 20051201
  4. DIOVAN HCT [Concomitant]
  5. METFORMIN HCL [Concomitant]
  6. NORVASC [Concomitant]
  7. PROVIGIL [Concomitant]
  8. CHLORAZEPAM [Concomitant]
  9. BUDEPRION [Concomitant]
  10. NEXIUM [Concomitant]
  11. SINGULAIR [Concomitant]
  12. VERAPAMIL [Concomitant]
  13. CIMBALTA [Concomitant]
  14. ADVAIR DISKUS 100/50 [Concomitant]

REACTIONS (4)
  - FALL [None]
  - HYPOTONIA [None]
  - MUSCULAR WEAKNESS [None]
  - MYALGIA [None]
